FAERS Safety Report 10905299 (Version 1)
Quarter: 2015Q1

REPORT INFORMATION
  Report Type: Spontaneous
  Country: JP (occurrence: JP)
  Receive Date: 20150311
  Receipt Date: 20150311
  Transmission Date: 20150721
  Serious: Yes (Hospitalization)
  Sender: FDA-Public Use
  Company Number: JP-BAUSCH-BL-2015-001117

PATIENT
  Age: 55 Year
  Sex: Female

DRUGS (9)
  1. CHOREAZINE TABLETS 12.5 MG [Suspect]
     Active Substance: TETRABENAZINE
     Route: 048
     Dates: start: 20130803, end: 20130817
  2. SERENACE [Concomitant]
     Active Substance: HALOPERIDOL
     Route: 048
     Dates: start: 20130703, end: 20130803
  3. SERENACE [Concomitant]
     Active Substance: HALOPERIDOL
     Route: 048
     Dates: start: 20130623, end: 20130703
  4. CHOREAZINE TABLETS 12.5 MG [Suspect]
     Active Substance: TETRABENAZINE
     Route: 048
     Dates: start: 20130703, end: 20130803
  5. SERENACE [Concomitant]
     Active Substance: HALOPERIDOL
     Route: 048
     Dates: start: 20130817, end: 20130828
  6. CHOREAZINE TABLETS 12.5 MG [Suspect]
     Active Substance: TETRABENAZINE
     Route: 048
     Dates: start: 20130817
  7. SERENACE [Concomitant]
     Active Substance: HALOPERIDOL
     Route: 048
     Dates: start: 20130803, end: 20130817
  8. CHOREAZINE TABLETS 12.5 MG [Suspect]
     Active Substance: TETRABENAZINE
     Indication: HUNTINGTON^S DISEASE
     Route: 048
     Dates: start: 20130623, end: 20130703
  9. SERENACE [Concomitant]
     Active Substance: HALOPERIDOL
     Indication: PRODUCT USED FOR UNKNOWN INDICATION
     Route: 048
     Dates: start: 20080920, end: 20130623

REACTIONS (1)
  - Pneumonia [Recovered/Resolved]

NARRATIVE: CASE EVENT DATE: 20141015
